FAERS Safety Report 17970006 (Version 2)
Quarter: 2020Q4

REPORT INFORMATION
  Report Type: Spontaneous
  Country: CN (occurrence: CN)
  Receive Date: 20200701
  Receipt Date: 20201027
  Transmission Date: 20210113
  Serious: Yes (Other)
  Sender: FDA-Public Use
  Company Number: NVSC2020CN184914

PATIENT
  Age: 39 Year
  Sex: Female

DRUGS (12)
  1. BUSULFAN. [Concomitant]
     Active Substance: BUSULFAN
     Indication: ALLOGENIC STEM CELL TRANSPLANTATION
     Dosage: 0.8 MG/KG, Q6H (10 TO 8 DAYS BEFORE TRANSPLANTATION)
     Route: 065
  2. CYTARABINE. [Concomitant]
     Active Substance: CYTARABINE
     Indication: IMMUNOSUPPRESSION
  3. MYCOPHENOLATE MOFETIL. [Suspect]
     Active Substance: MYCOPHENOLATE MOFETIL
     Indication: PROPHYLAXIS AGAINST GRAFT VERSUS HOST DISEASE
     Dosage: 500 MG, Q12H (STARTED 10 DAYS BEFORE TRANSPLANTATION)
     Route: 065
  4. BUSULFAN. [Concomitant]
     Active Substance: BUSULFAN
     Indication: IMMUNOSUPPRESSION
  5. CYCLOSPORINE. [Suspect]
     Active Substance: CYCLOSPORINE
     Indication: PROPHYLAXIS AGAINST GRAFT VERSUS HOST DISEASE
     Dosage: 2 MG/KG (STARTED 10 DAYS BEFORE TRANSPLANTATION)
     Route: 065
  6. CARMUSTINE. [Concomitant]
     Active Substance: CARMUSTINE
     Indication: ALLOGENIC STEM CELL TRANSPLANTATION
     Dosage: 250 MG, QD (7 DAYS BEFORE TRANSPLANTATION)
     Route: 065
  7. CYCLOPHOSPHAMIDE. [Concomitant]
     Active Substance: CYCLOPHOSPHAMIDE
     Indication: IMMUNOSUPPRESSION
  8. CYTARABINE. [Concomitant]
     Active Substance: CYTARABINE
     Indication: ALLOGENIC STEM CELL TRANSPLANTATION
     Dosage: 2 G/(M2D), 6 TO 5 DAYS
     Route: 065
  9. METHOTREXATE. [Suspect]
     Active Substance: METHOTREXATE
     Dosage: 10 MG/M2 (3, 6 AND 11 DAYS AFTER TRANSPLANTATION)
     Route: 041
  10. CYCLOPHOSPHAMIDE. [Concomitant]
     Active Substance: CYCLOPHOSPHAMIDE
     Indication: ALLOGENIC STEM CELL TRANSPLANTATION
     Dosage: 50 MG/(KGD) 4 TO 3 DAYS BEFORE TRANSPLANTATION
     Route: 065
  11. CARMUSTINE. [Concomitant]
     Active Substance: CARMUSTINE
     Indication: IMMUNOSUPPRESSION
  12. METHOTREXATE. [Suspect]
     Active Substance: METHOTREXATE
     Indication: PROPHYLAXIS AGAINST GRAFT VERSUS HOST DISEASE
     Dosage: 15 MG/M2 (ONE DAY AFTER TRANSPLANTATION)
     Route: 041

REACTIONS (2)
  - Product use in unapproved indication [Unknown]
  - Chronic graft versus host disease [Unknown]
